FAERS Safety Report 7815022-8 (Version None)
Quarter: 2011Q4

REPORT INFORMATION
  Report Type: 
  Country: None (occurrence: None)
  Receive Date: 20111014
  Receipt Date: 20110620
  Transmission Date: 20120403
  Serious: Yes (Hospitalization)
  Sender: FDA-Public Use
  Company Number: DE-GLAXOSMITHKLINE-D0072117A

PATIENT
  Age: 56 Year

DRUGS (5)
  1. NEUPRO [Suspect]
     Dosage: 16MG PER DAY
     Route: 062
  2. ENTACAPONE [Suspect]
     Route: 065
  3. ISICOM [Suspect]
     Route: 065
  4. TASMAR [Suspect]
     Route: 065
  5. REQUIP [Suspect]
     Indication: PARKINSON'S DISEASE
     Dosage: 12MG PER DAY
     Route: 048

REACTIONS (8)
  - DIPLEGIA [None]
  - DYSPNOEA [None]
  - THERAPEUTIC RESPONSE UNEXPECTED [None]
  - CONDITION AGGRAVATED [None]
  - GOUT [None]
  - DRUG INEFFECTIVE [None]
  - ASTHENIA [None]
  - PULMONARY FIBROSIS [None]
